FAERS Safety Report 13017425 (Version 3)
Quarter: 2018Q3

REPORT INFORMATION
  Report Type: Spontaneous
  Country: FR (occurrence: FR)
  Receive Date: 20161212
  Receipt Date: 20180719
  Transmission Date: 20181010
  Serious: Yes (Other)
  Sender: FDA-Public Use
  Company Number: FR-JNJFOC-20161208586

PATIENT
  Age: 45 Year
  Sex: Female

DRUGS (1)
  1. DARZALEX [Suspect]
     Active Substance: DARATUMUMAB
     Indication: PRODUCT USED FOR UNKNOWN INDICATION
     Route: 042

REACTIONS (8)
  - Histiocytosis haematophagic [Unknown]
  - Lymphoproliferative disorder [Unknown]
  - Renal failure [Unknown]
  - Haematuria [Unknown]
  - Hypotension [Unknown]
  - Thrombocytopenia [Unknown]
  - Epstein-Barr virus infection [Unknown]
  - Polyserositis [Unknown]
